FAERS Safety Report 6905425-8 (Version None)
Quarter: 2010Q3

REPORT INFORMATION
  Report Type: 
  Country: None (occurrence: None)
  Receive Date: 20100804
  Receipt Date: 20100721
  Transmission Date: 20110219
  Serious: Yes (Life-Threatening, Hospitalization)
  Sender: FDA-Public Use
  Company Number: NL-SOLVAY-00210004588

PATIENT
  Age: 75 Year
  Sex: Male

DRUGS (8)
  1. AMLODIPINE [Interacting]
     Indication: PRODUCT USED FOR UNKNOWN INDICATION
     Dosage: DAILY DOSE: 300 MILLIGRAM(S)
     Route: 065
  2. FUROSEMIDE [Interacting]
     Indication: PRODUCT USED FOR UNKNOWN INDICATION
     Dosage: DAILY DOSE: 800 MILLIGRAM(S)
     Route: 065
  3. ATORVASTATIN CALCIUM [Interacting]
     Indication: PRODUCT USED FOR UNKNOWN INDICATION
     Dosage: DAILY DOSE: 1200 MILLIGRAM(S)
     Route: 065
  4. ACENOCOUMAROL [Interacting]
     Indication: PRODUCT USED FOR UNKNOWN INDICATION
     Dosage: DAILY DOSE: 98 MILLIGRAM(S)
     Route: 065
  5. ISOSORBIDE MONONITRATE [Interacting]
     Indication: PRODUCT USED FOR UNKNOWN INDICATION
     Dosage: DAILY DOSE: 6000 MILLIGRAM(S)
     Route: 065
  6. SOTALOL HCL [Interacting]
     Indication: PRODUCT USED FOR UNKNOWN INDICATION
     Dosage: DAILY DOSE: 7200 MILLIGRAM(S)
     Route: 065
  7. DIGOXIN [Interacting]
     Indication: PRODUCT USED FOR UNKNOWN INDICATION
     Dosage: DAILY DOSE: 7.125 MILLIGRAM(S)
     Route: 065
  8. PERINDOPRIL [Suspect]
     Indication: PRODUCT USED FOR UNKNOWN INDICATION
     Dosage: DAILY DOSE: 200 MILLIGRAM(S)
     Route: 065

REACTIONS (4)
  - CARDIOGENIC SHOCK [None]
  - DRUG INTERACTION [None]
  - OVERDOSE [None]
  - RENAL FAILURE [None]
